FAERS Safety Report 10186039 (Version 3)
Quarter: 2014Q2

REPORT INFORMATION
  Report Type: Spontaneous
  Country: TR (occurrence: TR)
  Receive Date: 20140521
  Receipt Date: 20140530
  Transmission Date: 20141212
  Serious: Yes (Other)
  Sender: FDA-Public Use
  Company Number: TR-ALLERGAN-1409717US

PATIENT
  Age: 29 Year
  Sex: Female

DRUGS (2)
  1. BOTOX LIYOFILIZE TOZ ICEREN FLAKON [Suspect]
     Indication: HYPERHIDROSIS
     Dosage: 100 UNITS, SINGLE
     Dates: start: 20140422, end: 20140422
  2. BOTOX LIYOFILIZE TOZ ICEREN FLAKON [Suspect]
     Dosage: 25 UNITS, SINGLE
     Dates: start: 20140513, end: 20140513

REACTIONS (5)
  - Hypotension [Recovering/Resolving]
  - Hypersensitivity [Recovering/Resolving]
  - Pruritus [Recovering/Resolving]
  - Peripheral swelling [Recovering/Resolving]
  - Dyspnoea [Recovering/Resolving]
